FAERS Safety Report 5464763-9 (Version None)
Quarter: 2007Q3

REPORT INFORMATION
  Report Type: 
  Country: None (occurrence: None)
  Receive Date: 20070921
  Receipt Date: 20070917
  Transmission Date: 20080115
  Serious: Yes (Disabling)
  Sender: FDA-Public Use
  Company Number: AU-PFIZER INC-2007067570

PATIENT
  Sex: Male

DRUGS (1)
  1. SUTENT [Suspect]
     Indication: RENAL CELL CARCINOMA STAGE UNSPECIFIED
     Route: 048
     Dates: start: 20070507, end: 20070802

REACTIONS (2)
  - DISEASE PROGRESSION [None]
  - RENAL CELL CARCINOMA STAGE UNSPECIFIED [None]
